FAERS Safety Report 4475233-9 (Version None)
Quarter: 2004Q4

REPORT INFORMATION
  Report Type: 
  Country: None (occurrence: None)
  Receive Date: 20041013
  Receipt Date: 20041013
  Transmission Date: 20050328
  Serious: Yes (Other)
  Sender: FDA-Public Use
  Company Number: None

PATIENT
  Age: 22 Year
  Sex: Male
  Weight: 82 kg

DRUGS (7)
  1. CUBICIN [Suspect]
     Indication: FEBRILE NEUTROPENIA
     Dosage: 525 MG Q 24 H IV
     Route: 042
     Dates: start: 20040919, end: 20041010
  2. CEFEPIME [Concomitant]
  3. GLEEVEC [Concomitant]
  4. FLUCONAZOLE [Concomitant]
  5. METRONIDAZOLE [Concomitant]
  6. PANTOPRAZOLE [Concomitant]
  7. VALACYCLOVIR HCL [Concomitant]

REACTIONS (1)
  - BLOOD CREATINE PHOSPHOKINASE INCREASED [None]
